FAERS Safety Report 5829878-1 (Version None)
Quarter: 2008Q3

REPORT INFORMATION
  Report Type: 
  Country: None (occurrence: None)
  Receive Date: 20080801
  Receipt Date: 20080728
  Transmission Date: 20090109
  Serious: Yes (Other)
  Sender: FDA-Public Use
  Company Number: US-BAYER-200819572NA

PATIENT
  Age: 22 Year
  Sex: Female
  Weight: 79 kg

DRUGS (1)
  1. MIRENA [Suspect]
     Indication: DRUG USE FOR UNKNOWN INDICATION
     Route: 015
     Dates: start: 20070601, end: 20080402

REACTIONS (7)
  - ABDOMINAL ADHESIONS [None]
  - IUCD COMPLICATION [None]
  - IUD MIGRATION [None]
  - MENORRHAGIA [None]
  - SMALL INTESTINAL OBSTRUCTION [None]
  - UTERINE RUPTURE [None]
  - UTERINE SPASM [None]
